FAERS Safety Report 6425784-2 (Version None)
Quarter: 2009Q4

REPORT INFORMATION
  Report Type: 
  Country: None (occurrence: None)
  Receive Date: 20091103
  Receipt Date: 20091023
  Transmission Date: 20100525
  Serious: Yes (Other)
  Sender: FDA-Public Use
  Company Number: JP-MERCK-0910USA03266

PATIENT

DRUGS (7)
  1. COZAAR [Suspect]
     Indication: HYPERTENSION
     Route: 048
     Dates: start: 20081101
  2. COZAAR [Suspect]
     Indication: NEPHROPATHY
     Route: 048
     Dates: start: 20081101
  3. PREDONINE [Concomitant]
     Route: 065
  4. OMEPRAL [Concomitant]
     Route: 065
  5. LIVALO [Concomitant]
     Route: 048
  6. COMELIAN [Concomitant]
     Route: 048
  7. BONALON [Concomitant]
     Route: 048

REACTIONS (1)
  - HYPOGLYCAEMIA [None]
